FAERS Safety Report 6130458-1 (Version None)
Quarter: 2009Q1

REPORT INFORMATION
  Report Type: 
  Country: None (occurrence: None)
  Receive Date: 20090324
  Receipt Date: 20090309
  Transmission Date: 20090719
  Serious: Yes (Death)
  Sender: FDA-Public Use
  Company Number: US-GENENTECH-279396

PATIENT
  Age: 64 Year
  Sex: Male

DRUGS (6)
  1. RITUXAN [Suspect]
     Indication: CRYOGLOBULINAEMIA
     Dosage: 375 MG/M2, Q2W
     Route: 065
     Dates: start: 20070601
  2. PREDNISONE [Concomitant]
     Indication: DRUG USE FOR UNKNOWN INDICATION
     Dosage: 1 MG/KG, QD
     Dates: start: 20070101
  3. PREDNISONE [Concomitant]
     Dosage: UNK
     Dates: start: 20070601
  4. PREDNISONE [Concomitant]
     Dosage: 10 MG, QD
  5. ASPIRIN [Concomitant]
     Indication: DRUG USE FOR UNKNOWN INDICATION
     Dosage: 81 MG, QD
     Dates: start: 20050101
  6. METHOTREXATE [Concomitant]
     Indication: DRUG USE FOR UNKNOWN INDICATION
     Dosage: UNK
     Dates: start: 20070601

REACTIONS (1)
  - SEPSIS [None]
